FAERS Safety Report 7631150-4 (Version None)
Quarter: 2011Q3

REPORT INFORMATION
  Report Type: 
  Country: None (occurrence: None)
  Receive Date: 20110725
  Receipt Date: 20110715
  Transmission Date: 20111222
  Serious: Yes (Death)
  Sender: FDA-Public Use
  Company Number: JP-BAYER-2011-033951

PATIENT
  Age: 69 Year
  Sex: Female

DRUGS (10)
  1. SPIRONOLACTONE [Concomitant]
     Indication: ASCITES
     Dosage: DAILY DOSE 50 MG
     Route: 048
     Dates: end: 20110321
  2. NEXAVAR [Suspect]
     Indication: HEPATIC NEOPLASM MALIGNANT
     Dosage: 400 MG, QOD
     Route: 048
     Dates: start: 20110301, end: 20110315
  3. SENNOSIDE [Concomitant]
     Indication: CONSTIPATION
     Dosage: DAILY DOSE 24 MG
     Route: 048
     Dates: start: 20110308, end: 20110314
  4. MS CONTIN [Concomitant]
     Dosage: DAILY DOSE 20 MG
     Route: 048
     Dates: start: 20110308, end: 20110314
  5. MS CONTIN [Concomitant]
     Indication: PAIN
     Dosage: DAILY DOSE 10 MG
     Route: 048
     Dates: end: 20110307
  6. RABEPRAZOLE SODIUM [Concomitant]
     Indication: GASTROOESOPHAGEAL REFLUX DISEASE
     Dosage: DAILY DOSE 10 MG
     Route: 048
     Dates: end: 20110314
  7. AMINOVACT [Concomitant]
     Indication: HYPOALBUMINAEMIA
     Dosage: DAILY DOSE 14.1 G
     Route: 048
     Dates: end: 20110314
  8. URSO 250 [Concomitant]
     Indication: HEPATIC CIRRHOSIS
     Dosage: DAILY DOSE 300 MG
     Route: 048
     Dates: end: 20110314
  9. FUROSEMIDE [Concomitant]
     Indication: ASCITES
     Dosage: DAILY DOSE 20 MG
     Route: 048
     Dates: end: 20110314
  10. VOLTAREN [Concomitant]
     Indication: PAIN
     Dosage: DAILY DOSE 60 MG
     Route: 054
     Dates: end: 20110314

REACTIONS (6)
  - PLATELET COUNT DECREASED [None]
  - ALTERED STATE OF CONSCIOUSNESS [None]
  - BLOOD BILIRUBIN INCREASED [None]
  - DECREASED APPETITE [None]
  - HEPATIC FAILURE [None]
  - JAUNDICE [None]
